FAERS Safety Report 25043368 (Version 2)
Quarter: 2025Q2

REPORT INFORMATION
  Report Type: Report from Study
  Country: US (occurrence: US)
  Receive Date: 20250305
  Receipt Date: 20250422
  Transmission Date: 20250716
  Serious: Yes (Hospitalization)
  Sender: ABBVIE
  Company Number: US-ABBVIE-6128085

PATIENT
  Age: 65 Year
  Sex: Male

DRUGS (4)
  1. VENCLEXTA [Suspect]
     Active Substance: VENETOCLAX
     Indication: Acute myeloid leukaemia
     Dosage: TWO 100 MG VENCLEXTA ONCE DAILY
     Route: 048
     Dates: start: 20250129, end: 202502
  2. VENCLEXTA [Suspect]
     Active Substance: VENETOCLAX
     Indication: Acute myeloid leukaemia
     Dosage: TWO 100 MG VENCLEXTA ONCE DAILY
     Route: 048
     Dates: start: 2025, end: 202504
  3. VENCLEXTA [Suspect]
     Active Substance: VENETOCLAX
     Indication: Acute myeloid leukaemia
     Dosage: TWO 100 MG VENCLEXTA ONCE DAILY
     Route: 048
     Dates: start: 2025, end: 202503
  4. REZLIDHIA [Suspect]
     Active Substance: OLUTASIDENIB
     Indication: Acute myeloid leukaemia
     Route: 065
     Dates: start: 20250129

REACTIONS (4)
  - Pain [Unknown]
  - Malaise [Unknown]
  - Full blood count decreased [Unknown]
  - Nausea [Unknown]

NARRATIVE: CASE EVENT DATE: 20250101
